FAERS Safety Report 9134668 (Version 2)
Quarter: 2013Q1

REPORT INFORMATION
  Report Type: Spontaneous
  Country: US (occurrence: None)
  Receive Date: 20130205
  Receipt Date: 20130301
  Transmission Date: 20140127
  Serious: Yes (Hospitalization)
  Sender: FDA-Public Use
  Company Number: 2013-0154

PATIENT
  Age: 63 Year
  Sex: Female

DRUGS (4)
  1. KYPROLIS [Suspect]
     Indication: PLASMA CELL MYELOMA
     Route: 042
     Dates: start: 20130117, end: 20130118
  2. LORAZEPAM [Concomitant]
  3. DIAZEPAM (DIAZEPAM) (DIAZEPAM) [Concomitant]
  4. DECADRON (DEXAMETHASON) (DEXAMETHASONE) [Concomitant]

REACTIONS (8)
  - Pyrexia [None]
  - Respiratory disorder [None]
  - Pneumonia [None]
  - Liver function test abnormal [None]
  - Gastric haemorrhage [None]
  - Sepsis [None]
  - Ischaemic hepatitis [None]
  - Multi-organ failure [None]
